FAERS Safety Report 16407987 (Version 1)
Quarter: 2019Q2

REPORT INFORMATION
  Report Type: Spontaneous
  Country: DE (occurrence: DE)
  Receive Date: 20190610
  Receipt Date: 20190610
  Transmission Date: 20190711
  Serious: Yes (Death, Hospitalization, Other)
  Sender: FDA-Public Use
  Company Number: DE-UCBSA-2019024619

PATIENT
  Age: 44 Year
  Sex: Female

DRUGS (7)
  1. CYCLOPHOSPHAMIDE. [Suspect]
     Active Substance: CYCLOPHOSPHAMIDE
     Indication: SYSTEMIC SCLERODERMA
     Dosage: UNKNOWN DOSE
     Route: 065
  2. PROSTAVASIN [Suspect]
     Active Substance: ALPROSTADIL ALFADEX
     Indication: SYSTEMIC SCLERODERMA
     Dosage: UNKNOWN DOSE
     Route: 065
  3. OPSUMIT [Suspect]
     Active Substance: MACITENTAN
     Indication: SYSTEMIC SCLERODERMA
     Dosage: UNKNOWN DOSE
     Route: 048
  4. ILOMEDINE [Suspect]
     Active Substance: ILOPROST TROMETHAMINE
     Indication: SYSTEMIC SCLERODERMA
     Dosage: UNKNOWN DOSE
     Route: 065
  5. CYCLOSPORIN A [Suspect]
     Active Substance: CYCLOSPORINE
     Indication: SYSTEMIC SCLERODERMA
     Dosage: UNKNOWN DOSE
     Route: 065
  6. SILDENAFIL. [Suspect]
     Active Substance: SILDENAFIL
     Indication: SYSTEMIC SCLERODERMA
     Dosage: UNKNOWN DOSE
     Route: 065
  7. BOSENTAN. [Suspect]
     Active Substance: BOSENTAN
     Indication: SYSTEMIC SCLERODERMA
     Dosage: UNKNOWN DOSE
     Route: 048

REACTIONS (15)
  - Myocardial fibrosis [Unknown]
  - Systemic scleroderma [Unknown]
  - Multiple organ dysfunction syndrome [Fatal]
  - Heart transplant [Unknown]
  - Disease progression [Unknown]
  - Right ventricular failure [Unknown]
  - Respiratory failure [Unknown]
  - Galectin-3 increased [Unknown]
  - Cardiac dysfunction [Unknown]
  - Myocarditis [Unknown]
  - Sepsis [Unknown]
  - Right ventricular dilatation [Unknown]
  - Ventricular hypokinesia [Unknown]
  - Pneumonia [Unknown]
  - Left ventricular dysfunction [Unknown]
